FAERS Safety Report 7629745-7 (Version None)
Quarter: 2011Q3

REPORT INFORMATION
  Report Type: 
  Country: None (occurrence: None)
  Receive Date: 20110722
  Receipt Date: 20110718
  Transmission Date: 20111222
  Serious: No
  Sender: FDA-Public Use
  Company Number: US-PFIZER INC-2011162982

PATIENT
  Sex: Female
  Weight: 140.2 kg

DRUGS (1)
  1. GENOTROPIN [Suspect]
     Dosage: 0.8 MG, 1X/DAY
     Route: 058
     Dates: start: 20100716, end: 20110701

REACTIONS (1)
  - BLOOD GLUCOSE INCREASED [None]
